FAERS Safety Report 25539934 (Version 1)
Quarter: 2025Q3

REPORT INFORMATION
  Report Type: Spontaneous
  Country: GB (occurrence: GB)
  Receive Date: 20250710
  Receipt Date: 20250710
  Transmission Date: 20251021
  Serious: Yes (Other)
  Sender: DR REDDYS
  Company Number: None

PATIENT
  Age: 62 Year
  Sex: Male
  Weight: 92 kg

DRUGS (5)
  1. IMATINIB [Suspect]
     Active Substance: IMATINIB
     Indication: Product used for unknown indication
  2. SUNITINIB [Suspect]
     Active Substance: SUNITINIB
     Indication: Product used for unknown indication
  3. CABOMETYX [Suspect]
     Active Substance: CABOZANTINIB S-MALATE
     Indication: Gastrointestinal stromal tumour
     Dosage: DAILY
     Route: 048
     Dates: start: 20231212, end: 20240116
  4. CABOMETYX [Suspect]
     Active Substance: CABOZANTINIB S-MALATE
     Indication: Off label use
     Dosage: DAILY
     Route: 048
     Dates: start: 20240206
  5. REGORAFENIB [Suspect]
     Active Substance: REGORAFENIB
     Indication: Product used for unknown indication

REACTIONS (6)
  - Malignant neoplasm progression [Unknown]
  - Off label use [Unknown]
  - Blister [Recovered/Resolved]
  - Toxicity to various agents [Unknown]
  - Product dose omission issue [Unknown]
  - Product distribution issue [Unknown]

NARRATIVE: CASE EVENT DATE: 20231212
